FAERS Safety Report 13518464 (Version 1)
Quarter: 2017Q2

REPORT INFORMATION
  Report Type: Spontaneous
  Country: US (occurrence: US)
  Receive Date: 20170505
  Receipt Date: 20170505
  Transmission Date: 20170830
  Serious: Yes (Hospitalization)
  Sender: FDA-Public Use
  Company Number: None

PATIENT
  Age: 53 Year
  Sex: Female
  Weight: 81 kg

DRUGS (3)
  1. NUCYNTA [Suspect]
     Active Substance: TAPENTADOL HYDROCHLORIDE
     Indication: PAIN
     Route: 048
     Dates: start: 20170412, end: 20170504
  2. NUCYNTA [Suspect]
     Active Substance: TAPENTADOL HYDROCHLORIDE
     Indication: SPINAL FUSION SURGERY
     Route: 048
     Dates: start: 20170412, end: 20170504
  3. NUCYNTA [Suspect]
     Active Substance: TAPENTADOL HYDROCHLORIDE
     Indication: PROCEDURAL PAIN
     Route: 048
     Dates: start: 20170412, end: 20170504

REACTIONS (7)
  - Temperature regulation disorder [None]
  - Chills [None]
  - Blood pressure increased [None]
  - Arthralgia [None]
  - Flushing [None]
  - Hyperhidrosis [None]
  - Nausea [None]

NARRATIVE: CASE EVENT DATE: 20170427
